FAERS Safety Report 14204622 (Version 1)
Quarter: 2017Q4

REPORT INFORMATION
  Report Type: Spontaneous
  Country: MX (occurrence: MX)
  Receive Date: 20171120
  Receipt Date: 20171120
  Transmission Date: 20180321
  Serious: Yes (Other)
  Sender: FDA-Public Use
  Company Number: MX-PFIZER INC-2017494749

PATIENT
  Age: 53 Year
  Sex: Male
  Weight: 83 kg

DRUGS (1)
  1. TERRAMICINA (OXYTETRACYCLINE HYDROCHLORIDE) [Suspect]
     Active Substance: OXYTETRACYCLINE HYDROCHLORIDE
     Dosage: UNK

REACTIONS (4)
  - Hypersensitivity [Unknown]
  - Prescription drug used without a prescription [Unknown]
  - Angioedema [Unknown]
  - Self-medication [None]
